FAERS Safety Report 4968667-7 (Version None)
Quarter: 2006Q2

REPORT INFORMATION
  Report Type: 
  Country: None (occurrence: None)
  Receive Date: 20060411
  Receipt Date: 20060201
  Transmission Date: 20061013
  Serious: Yes (Other)
  Sender: FDA-Public Use
  Company Number: JP-NOVOPROD-250561

PATIENT
  Sex: Female

DRUGS (1)
  1. PENFILL 30R CHU [Suspect]
     Indication: DIABETES MELLITUS
     Route: 058

REACTIONS (1)
  - SHOCK [None]
